FAERS Safety Report 13772255 (Version 3)
Quarter: 2017Q3

REPORT INFORMATION
  Report Type: Report from Study
  Country: US (occurrence: US)
  Receive Date: 20170720
  Receipt Date: 20170802
  Transmission Date: 20171127
  Serious: Yes (Hospitalization, Other)
  Sender: FDA-Public Use
  Company Number: US-PFIZER INC-2017076819

PATIENT
  Age: 63 Year
  Sex: Female

DRUGS (3)
  1. IBRANCE [Suspect]
     Active Substance: PALBOCICLIB
     Dosage: 75 MG, DAILY
     Route: 048
     Dates: start: 20170601, end: 20170621
  2. IBRANCE [Suspect]
     Active Substance: PALBOCICLIB
     Indication: BREAST CANCER
     Dosage: 125 MG, CYCLIC (DAILY FOR DAY 1- DAY 21 FOLLOWED BY 7 DAYS OFF EVERY 28 DAYS)
     Route: 048
     Dates: start: 20170208, end: 20170405
  3. IBRANCE [Suspect]
     Active Substance: PALBOCICLIB
     Dosage: 100 MG, CYCLIC, (DAILY FOR DAY 1-DAY 21 FOLLOWED BY 7 DAYS OFF EVERY 28 DAYS)
     Route: 048
     Dates: start: 20170406, end: 20170531

REACTIONS (12)
  - Drug dose omission [Unknown]
  - Neutropenia [Recovering/Resolving]
  - Fatigue [Recovering/Resolving]
  - Arthralgia [Recovering/Resolving]
  - White blood cell count decreased [Recovering/Resolving]
  - Product use in unapproved indication [Unknown]
  - Neck pain [Recovering/Resolving]
  - Post procedural haematoma [Unknown]
  - Myalgia [Recovering/Resolving]
  - Pain in extremity [Recovering/Resolving]
  - Headache [Unknown]
  - Syncope [Unknown]

NARRATIVE: CASE EVENT DATE: 20170208
